FAERS Safety Report 7530661-X (Version None)
Quarter: 2011Q2

REPORT INFORMATION
  Report Type: 
  Country: None (occurrence: None)
  Receive Date: 20110607
  Receipt Date: 20110524
  Transmission Date: 20111010
  Serious: Yes (Death, Hospitalization, Other)
  Sender: FDA-Public Use
  Company Number: DE-CELGENEUS-062-50794-11053115

PATIENT
  Age: 32 Year
  Sex: Male

DRUGS (7)
  1. ACYCLOVIR [Concomitant]
     Route: 065
  2. VIDAZA [Suspect]
     Route: 065
     Dates: start: 20100830
  3. PLATELETS [Concomitant]
     Route: 065
  4. VIDAZA [Suspect]
     Indication: ACUTE LYMPHOCYTIC LEUKAEMIA
     Route: 065
     Dates: start: 20100608
  5. RED BLOOD CELLS [Concomitant]
     Route: 065
  6. VIDAZA [Suspect]
     Route: 065
     Dates: start: 20100705
  7. VIDAZA [Suspect]
     Route: 065
     Dates: start: 20100802

REACTIONS (5)
  - ACUTE LYMPHOCYTIC LEUKAEMIA [None]
  - STAPHYLOCOCCAL BACTERAEMIA [None]
  - URINARY TRACT INFECTION [None]
  - PNEUMONIA [None]
  - FEBRILE NEUTROPENIA [None]
